FAERS Safety Report 9741416 (Version 2)
Quarter: 2013Q4

REPORT INFORMATION
  Report Type: Spontaneous
  Country: DE (occurrence: DE)
  Receive Date: 20131209
  Receipt Date: 20131209
  Transmission Date: 20140711
  Serious: Yes (Other)
  Sender: FDA-Public Use
  Company Number: PHHY2013DE138792

PATIENT
  Age: 77 Year
  Sex: Male

DRUGS (11)
  1. RASILEZ [Suspect]
     Indication: HYPERTENSION
     Dosage: 1 DF, QD (150 MG)
     Dates: start: 2009
  2. RASILEZ [Suspect]
     Dosage: 1 DF (150 MG), QD
  3. AMIODARONE [Concomitant]
  4. MARCUMAR [Concomitant]
  5. KALINOR [Concomitant]
     Dosage: AS NEEDED
  6. TORASEMID [Concomitant]
  7. NITROSPRAY [Concomitant]
  8. SPIRIVA [Concomitant]
  9. VENTOLAIR [Concomitant]
     Dosage: 250
  10. SALBUTAMOL [Concomitant]
  11. EMSER SALT [Concomitant]

REACTIONS (11)
  - Salivary gland calculus [Not Recovered/Not Resolved]
  - Salivary gland disorder [Not Recovered/Not Resolved]
  - Salivary gland enlargement [Not Recovered/Not Resolved]
  - Odynophagia [Not Recovered/Not Resolved]
  - Skin exfoliation [Not Recovered/Not Resolved]
  - Laryngitis [Not Recovered/Not Resolved]
  - Dysphagia [Not Recovered/Not Resolved]
  - Pharyngeal oedema [Not Recovered/Not Resolved]
  - Oropharyngeal pain [Unknown]
  - Local swelling [Not Recovered/Not Resolved]
  - Oedema peripheral [Not Recovered/Not Resolved]
